FAERS Safety Report 15290946 (Version 1)
Quarter: 2018Q3

REPORT INFORMATION
  Report Type: Spontaneous
  Country: FR (occurrence: FR)
  Receive Date: 20180817
  Receipt Date: 20180817
  Transmission Date: 20181010
  Serious: Yes (Hospitalization)
  Sender: FDA-Public Use
  Company Number: FR-BAUSCH-BL-2018-021521

PATIENT
  Age: 76 Year
  Sex: Male
  Weight: 59 kg

DRUGS (19)
  1. SPASFON [Concomitant]
     Indication: PROPHYLAXIS
     Route: 048
     Dates: start: 20160920
  2. ZELITREX [Concomitant]
     Active Substance: VALACYCLOVIR HYDROCHLORIDE
     Indication: INFECTION PROPHYLAXIS
     Dosage: 1000 MG
     Route: 048
     Dates: start: 20161229
  3. ARANESP [Concomitant]
     Active Substance: DARBEPOETIN ALFA
     Indication: ANAEMIA PROPHYLAXIS
     Dosage: 150 MILLIGRAM
     Route: 030
     Dates: start: 20161027
  4. DUROGESIC [Concomitant]
     Active Substance: FENTANYL
     Indication: BACK PAIN
     Dosage: 12 IMPLANTS
     Route: 050
     Dates: start: 20161129
  5. DEXAMETHASONE. [Suspect]
     Active Substance: DEXAMETHASONE
     Indication: PLASMA CELL MYELOMA
     Route: 048
     Dates: start: 20160929
  6. APROVEL [Concomitant]
     Active Substance: IRBESARTAN
     Indication: HYPERTENSION
     Dosage: 75 MILLIGRAM
     Route: 048
     Dates: start: 20160920
  7. BROMAZEPAM [Concomitant]
     Active Substance: BROMAZEPAM
     Indication: BACK PAIN
     Dosage: 3 MILLIGRAM
     Route: 048
     Dates: start: 20161129
  8. BACTRIM [Concomitant]
     Active Substance: SULFAMETHOXAZOLE\TRIMETHOPRIM
     Indication: INFECTION PROPHYLAXIS
     Dosage: 3 (UNITS UNSPECIFIED) DAILY
     Route: 048
     Dates: start: 20160929
  9. INEXIUM [Concomitant]
     Active Substance: ESOMEPRAZOLE
     Indication: CHOLECYSTECTOMY
     Dosage: 40 MILLIGRAM
     Route: 048
     Dates: start: 20160920
  10. REVLIMID [Suspect]
     Active Substance: LENALIDOMIDE
     Indication: PLASMA CELL MYELOMA
     Route: 048
     Dates: start: 20160929, end: 20170111
  11. LECTIL [Concomitant]
     Active Substance: BETAHISTINE HYDROCHLORIDE
     Indication: HYPERTENSION
     Dosage: 1 (UNSPECIFIED UNITS) DAILY
     Route: 048
     Dates: start: 20160920
  12. XARELTO [Concomitant]
     Active Substance: RIVAROXABAN
     Indication: PROPHYLAXIS
     Dosage: 10 MILLIGRAM
     Route: 048
     Dates: start: 20161222
  13. CANDESARTAN. [Concomitant]
     Active Substance: CANDESARTAN
     Indication: BACK PAIN
     Dosage: 8 MG
     Route: 048
     Dates: start: 20161129
  14. NEULASTA [Concomitant]
     Active Substance: PEGFILGRASTIM
     Indication: PROPHYLAXIS
     Dosage: ONE (UNSPECIFIED UNITS) WEEKLY
     Route: 048
     Dates: start: 20161031
  15. REVLIMID [Suspect]
     Active Substance: LENALIDOMIDE
     Dosage: DOSE REDUCED
     Route: 048
     Dates: start: 20170123
  16. SMECTA [Concomitant]
     Active Substance: MONTMORILLONITE
     Indication: DIARRHOEA
     Dosage: 1 (UNSPECIFED UNITS)
     Route: 048
     Dates: start: 20160920
  17. IMODIUM [Concomitant]
     Active Substance: LOPERAMIDE HYDROCHLORIDE
     Indication: DIARRHOEA
     Dosage: DAILY (1 UNITS UNSPECIFIED)
     Route: 048
     Dates: start: 20160920
  18. IMOVANE [Concomitant]
     Active Substance: ZOPICLONE
     Indication: PROPHYLAXIS
     Dosage: 3.25 MILLIGRAM
     Route: 048
     Dates: start: 20160920
  19. PARACETAMOL [Concomitant]
     Active Substance: ACETAMINOPHEN
     Indication: BACK PAIN
     Dosage: 500 MG
     Route: 060
     Dates: start: 20161129

REACTIONS (3)
  - Anaemia [Recovered/Resolved]
  - Bradycardia [Recovered/Resolved]
  - Pneumonia [Recovered/Resolved]

NARRATIVE: CASE EVENT DATE: 20170111
